FAERS Safety Report 6638989-2 (Version None)
Quarter: 2010Q1

REPORT INFORMATION
  Report Type: 
  Country: None (occurrence: None)
  Receive Date: 20100317
  Receipt Date: 20100312
  Transmission Date: 20100710
  Serious: Yes (Hospitalization)
  Sender: FDA-Public Use
  Company Number: US-RB-003097-10

PATIENT
  Age: 31 Year
  Sex: Female

DRUGS (1)
  1. SUBOXONE [Suspect]
     Indication: DRUG USE FOR UNKNOWN INDICATION
     Dosage: DOSING DETAILS UNKNOWN
     Route: 065

REACTIONS (15)
  - ANGER [None]
  - AUTOIMMUNE DISORDER [None]
  - BACK PAIN [None]
  - DYSPNOEA [None]
  - FIBROMYALGIA [None]
  - GALLBLADDER DISORDER [None]
  - HEART RATE INCREASED [None]
  - INFECTION [None]
  - LUNG INFECTION [None]
  - MUSCULOSKELETAL STIFFNESS [None]
  - OEDEMA PERIPHERAL [None]
  - PAIN [None]
  - PAIN IN EXTREMITY [None]
  - SOMNOLENCE [None]
  - WEIGHT DECREASED [None]
